FAERS Safety Report 9661284 (Version 2)
Quarter: 2013Q4

REPORT INFORMATION
  Report Type: Spontaneous
  Country: US (occurrence: None)
  Receive Date: 20131030
  Receipt Date: 20131119
  Transmission Date: 20140711
  Serious: Yes (Hospitalization)
  Sender: FDA-Public Use
  Company Number: 2013US002772

PATIENT
  Age: 68 Year
  Sex: Female
  Weight: 88 kg

DRUGS (18)
  1. ICLUSIG [Suspect]
     Indication: CHRONIC MYELOID LEUKAEMIA
     Route: 048
     Dates: start: 20130513, end: 201307
  2. COREG CR (CARVEDILOL) [Concomitant]
  3. ZYLOPRIM (ALLOPURINOL [Concomitant]
  4. ALTROVENT (LPRATROPIUM BROMIDE) [Concomitant]
  5. LASIX (FUROSEMIDE SODIUM) [Concomitant]
  6. ZETIA (EZETIMIBE) TABLET [Concomitant]
  7. ADVAIR (FLUTICASONE PROPIONATE, SALMETEROL XINAFOATE) [Concomitant]
  8. DUONEB (LPRATROPIUM BROMIDE, SALBUTAMOL SULFATE) [Concomitant]
  9. ASPIRIN (ASPIRIN) [Concomitant]
  10. SYNTHROID (LEVOTHYROXINE SODIUM) [Concomitant]
  11. NATEGLINIDE (NATEGLINIDE) [Concomitant]
  12. LACTULOSE (LACTULOSE) [Concomitant]
  13. ATIVAN (LORAZEPAM) [Concomitant]
  14. LEVEMIR (INSULIN DETEMIR) [Concomitant]
  15. LOSARTAN (LOSARTAN) [Concomitant]
  16. BUMETANIDE (BUMETANIDE) [Concomitant]
  17. TACLONEX (BETAMETHASONE DIPROPIONATE, CALCIPOTRIOL) [Concomitant]
  18. RAPAFLO (SILODOSIN) [Concomitant]

REACTIONS (4)
  - Hypoxia [None]
  - Asthma [None]
  - Pneumonia [None]
  - Pancreatitis [None]
